FAERS Safety Report 7064492-4 (Version None)
Quarter: 2010Q4

REPORT INFORMATION
  Report Type: 
  Country: None (occurrence: None)
  Receive Date: 20101027
  Receipt Date: 20101014
  Transmission Date: 20110411
  Serious: Yes (Hospitalization, Other)
  Sender: FDA-Public Use
  Company Number: JP-PFIZER INC-2010130859

PATIENT
  Age: 80 Year
  Sex: Female

DRUGS (1)
  1. LYRICA [Suspect]
     Dosage: 150 MG, DAY
     Route: 048
     Dates: start: 20100901, end: 20101001

REACTIONS (8)
  - ATELECTASIS [None]
  - DIZZINESS [None]
  - DYSARTHRIA [None]
  - FALL [None]
  - HAEMORRHAGE [None]
  - HEPATITIS [None]
  - PLEURAL EFFUSION [None]
  - PNEUMONIA [None]
